FAERS Safety Report 18267246 (Version 1)
Quarter: 2020Q3

REPORT INFORMATION
  Report Type: Spontaneous
  Country: US (occurrence: US)
  Receive Date: 20200915
  Receipt Date: 20200915
  Transmission Date: 20201103
  Serious: No
  Sender: FDA-Public Use
  Company Number: US-UNITED THERAPEUTICS-UNT-2020-011675

PATIENT
  Sex: Female

DRUGS (3)
  1. REMODULIN [Suspect]
     Active Substance: TREPROSTINIL
     Dosage: 0.0615 ?G/KG, CONTINUING
     Route: 058
  2. REMODULIN [Suspect]
     Active Substance: TREPROSTINIL
     Indication: PULMONARY ARTERIAL HYPERTENSION
     Dosage: UNK UNK, CONTINUING
     Route: 058
     Dates: start: 20171207
  3. REMODULIN [Suspect]
     Active Substance: TREPROSTINIL
     Dosage: UNK
     Route: 058
     Dates: start: 20181106

REACTIONS (4)
  - Headache [Recovered/Resolved]
  - Oedema [Unknown]
  - Fatigue [Unknown]
  - Asthenia [Recovered/Resolved]
